FAERS Safety Report 17925951 (Version 1)
Quarter: 2020Q2

REPORT INFORMATION
  Report Type: Spontaneous
  Country: DK (occurrence: DK)
  Receive Date: 20200622
  Receipt Date: 20200622
  Transmission Date: 20200714
  Serious: Yes (Hospitalization)
  Sender: FDA-Public Use
  Company Number: DK-ELI_LILLY_AND_COMPANY-DK202006006931

PATIENT
  Age: 61 Year
  Sex: Female
  Weight: 72 kg

DRUGS (4)
  1. ZYPADHERA [Suspect]
     Active Substance: OLANZAPINE PAMOATE
     Indication: PSYCHOTIC DISORDER
     Dosage: STYRKE: 405 MG
     Route: 030
     Dates: start: 20120501
  2. ZYPADHERA [Suspect]
     Active Substance: OLANZAPINE PAMOATE
     Indication: PSYCHOTIC DISORDER
     Dosage: STYRKE: 405 MG
     Route: 030
     Dates: start: 20120501
  3. ZYPADHERA [Suspect]
     Active Substance: OLANZAPINE PAMOATE
     Indication: PSYCHOTIC DISORDER
     Dosage: STYRKE: 405 MG
     Route: 030
     Dates: start: 20120501
  4. LITIUMKARBONAT [Concomitant]
     Active Substance: LITHIUM CARBONATE
     Indication: PSYCHOTIC DISORDER
     Dosage: STYRKE: 300 MG (8,1 MMOL LI+)
     Route: 048
     Dates: start: 20131206

REACTIONS (7)
  - Coordination abnormal [Unknown]
  - Depressed level of consciousness [Unknown]
  - Discomfort [Unknown]
  - Hypotension [Unknown]
  - Heart rate increased [Unknown]
  - Immediate post-injection reaction [Unknown]
  - Dysarthria [Unknown]

NARRATIVE: CASE EVENT DATE: 20200602
